FAERS Safety Report 16201785 (Version 2)
Quarter: 2019Q2

REPORT INFORMATION
  Report Type: Spontaneous
  Country: SK (occurrence: SK)
  Receive Date: 20190416
  Receipt Date: 20190430
  Transmission Date: 20190711
  Serious: Yes (Death, Hospitalization)
  Sender: FDA-Public Use
  Company Number: SK-ROCHE-2303985

PATIENT
  Age: 62 Year
  Sex: Female
  Weight: 38 kg

DRUGS (1)
  1. ROACTEMRA [Suspect]
     Active Substance: TOCILIZUMAB
     Indication: RHEUMATOID ARTHRITIS
     Route: 042
     Dates: start: 20100308, end: 20190226

REACTIONS (6)
  - Ill-defined disorder [Unknown]
  - Hip fracture [Unknown]
  - Cardiopulmonary failure [Fatal]
  - Pneumonia [Unknown]
  - Hip arthroplasty [Unknown]
  - Diverticulitis oesophageal [Unknown]

NARRATIVE: CASE EVENT DATE: 201811
